FAERS Safety Report 4911791-5 (Version None)
Quarter: 2006Q1

REPORT INFORMATION
  Report Type: 
  Country: None (occurrence: None)
  Receive Date: 20060213
  Receipt Date: 20060213
  Transmission Date: 20060701
  Serious: Yes (Hospitalization, Other)
  Sender: FDA-Public Use
  Company Number: None

PATIENT
  Sex: Female
  Weight: 120.5 kg

DRUGS (3)
  1. CYCLOPHOSPHAMIDE [Suspect]
     Indication: BREAST CANCER
     Dosage: 1320 MG
     Dates: start: 20060125, end: 20060125
  2. DOXORUBICIN HCL [Suspect]
     Dosage: 132 MG
     Dates: start: 20060125, end: 20060125
  3. SPIRIVA [Concomitant]

REACTIONS (8)
  - BLOOD POTASSIUM DECREASED [None]
  - COUGH [None]
  - DIARRHOEA [None]
  - DYSPNOEA [None]
  - INFLUENZA [None]
  - NAUSEA [None]
  - NEUTROPENIA [None]
  - PYREXIA [None]
